FAERS Safety Report 5995291-X (Version None)
Quarter: 2008Q4

REPORT INFORMATION
  Report Type: 
  Country: None (occurrence: None)
  Receive Date: 20081212
  Receipt Date: 20080924
  Transmission Date: 20090506
  Serious: No
  Sender: FDA-Public Use
  Company Number: US-ABBOTT-08P-163-0478308-00

PATIENT
  Sex: Female
  Weight: 80.812 kg

DRUGS (2)
  1. HUMIRA [Suspect]
     Indication: RHEUMATOID ARTHRITIS
     Dosage: ON HOLD
     Route: 058
     Dates: start: 20080910, end: 20080924
  2. PROPACET 100 [Concomitant]
     Indication: PAIN
     Dosage: EVERY 4-6 HOURS/300-400MG DAILY
     Route: 048

REACTIONS (2)
  - PAIN IN JAW [None]
  - TOOTH INFECTION [None]
